FAERS Safety Report 15472882 (Version 2)
Quarter: 2018Q4

REPORT INFORMATION
  Report Type: Spontaneous
  Country: US (occurrence: US)
  Receive Date: 20181008
  Receipt Date: 20181010
  Transmission Date: 20190205
  Serious: No
  Sender: FDA-Public Use
  Company Number: US-PFIZER INC-2018389404

PATIENT
  Age: 48 Year
  Sex: Male

DRUGS (2)
  1. DILANTIN [Suspect]
     Active Substance: PHENYTOIN
     Indication: SEIZURE
     Dosage: 5.5 TABLETS, 2X/DAY
     Route: 048
  2. DILANTIN [Suspect]
     Active Substance: PHENYTOIN
     Dosage: 10.5 TABLETS, DAILY (5 AND A HALF TABLETS IN THE MORNING, 5 AT NIGHT)

REACTIONS (2)
  - Product dispensing error [Unknown]
  - Intentional product use issue [Unknown]
